FAERS Safety Report 6774820-2 (Version None)
Quarter: 2010Q2

REPORT INFORMATION
  Report Type: 
  Country: None (occurrence: None)
  Receive Date: 20100617
  Receipt Date: 20100611
  Transmission Date: 20101027
  Serious: No
  Sender: FDA-Public Use
  Company Number: BR-ROCHE-679724

PATIENT
  Sex: Female
  Weight: 2.9 kg

DRUGS (3)
  1. ROACUTAN [Suspect]
     Indication: ACNE
     Route: 064
  2. ROACUTAN [Suspect]
     Route: 064
     Dates: end: 20090901
  3. ENDOFOLIN [Concomitant]

REACTIONS (2)
  - NO ADVERSE EVENT [None]
  - NORMAL NEWBORN [None]
